FAERS Safety Report 14161037 (Version 2)
Quarter: 2017Q4

REPORT INFORMATION
  Report Type: Report from Study
  Country: CN (occurrence: CN)
  Receive Date: 20171106
  Receipt Date: 20171108
  Transmission Date: 20180321
  Serious: Yes (Hospitalization)
  Sender: FDA-Public Use
  Company Number: CN-MYLANLABS-2017M1068666

PATIENT
  Age: 50 Year
  Sex: Male

DRUGS (6)
  1. VENLAFAXINE [Interacting]
     Active Substance: VENLAFAXINE HYDROCHLORIDE
     Indication: SOMATIC SYMPTOM DISORDER
     Dosage: 225 MG/DAY
     Route: 065
  2. OLANZAPINE. [Suspect]
     Active Substance: OLANZAPINE
     Indication: SOMATIC SYMPTOM DISORDER
     Dosage: 5 MG/DAY
     Route: 065
  3. PYRIDOSTIGMINE [Suspect]
     Active Substance: PYRIDOSTIGMINE
     Indication: TARDIVE DYSKINESIA
  4. PALIPERIDONE. [Suspect]
     Active Substance: PALIPERIDONE
     Indication: SOMATIC SYMPTOM DISORDER
     Dosage: 3 MG/DAY
     Route: 065
  5. PYRIDOSTIGMINE [Suspect]
     Active Substance: PYRIDOSTIGMINE
     Indication: SOMATIC SYMPTOM DISORDER
     Dosage: FOR 1 MONTH
     Route: 065
  6. DULOXETINE. [Concomitant]
     Active Substance: DULOXETINE
     Indication: SOMATIC SYMPTOM DISORDER
     Dosage: 60 MG/DAY
     Route: 065

REACTIONS (3)
  - Dystonia [Recovering/Resolving]
  - Drug interaction [Recovering/Resolving]
  - Rash [Recovered/Resolved]
